FAERS Safety Report 15600417 (Version 1)
Quarter: 2018Q4

REPORT INFORMATION
  Report Type: Spontaneous
  Country: RO (occurrence: RO)
  Receive Date: 20181109
  Receipt Date: 20181109
  Transmission Date: 20190205
  Serious: Yes (Hospitalization, Other)
  Sender: FDA-Public Use
  Company Number: RO-AUROBINDO-AUR-APL-2018-054452

PATIENT
  Age: 43 Year
  Sex: Female

DRUGS (3)
  1. VALPROIC ACID. [Suspect]
     Active Substance: VALPROIC ACID
     Indication: SCHIZOPHRENIA
     Dosage: 500 MILLIGRAM
     Route: 048
     Dates: start: 2004
  2. DULOXETINE. [Suspect]
     Active Substance: DULOXETINE
     Indication: SCHIZOPHRENIA
     Dosage: 60 MILLIGRAM
     Route: 048
     Dates: start: 2004
  3. ARIPIPRAZOLE TABLETS [Suspect]
     Active Substance: ARIPIPRAZOLE
     Indication: SCHIZOPHRENIA
     Dosage: 10 MILLIGRAM
     Route: 048
     Dates: start: 2004

REACTIONS (4)
  - Treatment noncompliance [Recovered/Resolved]
  - Schizophrenia [Recovered/Resolved]
  - Off label use [Unknown]
  - Therapeutic response decreased [Unknown]

NARRATIVE: CASE EVENT DATE: 201304
